FAERS Safety Report 6890518-4 (Version None)
Quarter: 2010Q3

REPORT INFORMATION
  Report Type: 
  Country: None (occurrence: None)
  Receive Date: 20100731
  Receipt Date: 20081110
  Transmission Date: 20110219
  Serious: Yes (Other)
  Sender: FDA-Public Use
  Company Number: US-PFIZER INC-2008081255

PATIENT

DRUGS (1)
  1. LIPITOR [Suspect]

REACTIONS (4)
  - FATIGUE [None]
  - MYALGIA [None]
  - PANCREATITIS [None]
  - RECTAL HAEMORRHAGE [None]
